FAERS Safety Report 16263743 (Version 1)
Quarter: 2019Q2

REPORT INFORMATION
  Report Type: Spontaneous
  Country: US (occurrence: US)
  Receive Date: 20190502
  Receipt Date: 20190502
  Transmission Date: 20190711
  Serious: No
  Sender: FDA-Public Use
  Company Number: US-AJANTA PHARMA USA INC.-2066521

PATIENT
  Sex: Male

DRUGS (1)
  1. DULOXETINE (ANDA 208706) [Suspect]
     Active Substance: DULOXETINE
     Indication: PRODUCT USED FOR UNKNOWN INDICATION
     Dates: start: 2018

REACTIONS (6)
  - Abdominal pain upper [Not Recovered/Not Resolved]
  - Groin pain [Not Recovered/Not Resolved]
  - Erectile dysfunction [Not Recovered/Not Resolved]
  - Ejaculation delayed [Not Recovered/Not Resolved]
  - Testicular pain [Not Recovered/Not Resolved]
  - Painful ejaculation [Not Recovered/Not Resolved]

NARRATIVE: CASE EVENT DATE: 2018
